FAERS Safety Report 8570534 (Version 2)
Quarter: 2012Q4

REPORT INFORMATION
  Report Type: Report from Study
  Country: BE (occurrence: BE)
  Receive Date: 20120521
  Receipt Date: 20120830
  Transmission Date: 20130627
  Serious: Yes (Other)
  Sender: FDA-Public Use
  Company Number: BE-CELGENEUS-013-C5013-12051166

PATIENT
  Age: 73 Year
  Sex: Male
  Weight: 68 kg

DRUGS (13)
  1. THALIDOMIDE [Suspect]
     Indication: MULTIPLE MYELOMA
     Dosage: 200 Milligram
     Route: 048
     Dates: start: 20100409
  2. THALIDOMIDE [Suspect]
     Dosage: 200 Milligram
     Route: 048
     Dates: end: 20100919
  3. MELPHALAN [Suspect]
     Indication: MULTIPLE MYELOMA
     Dosage: 16 Milligram
     Route: 065
     Dates: start: 20100409
  4. MELPHALAN [Suspect]
     Dosage: 16 Milligram
     Route: 065
     Dates: end: 20100830
  5. PREDNISONE [Suspect]
     Indication: MULTIPLE MYELOMA
     Dosage: 120 Milligram
     Route: 065
     Dates: start: 20100409
  6. PREDNISONE [Suspect]
     Dosage: 120 Milligram
     Route: 065
     Dates: end: 20100830
  7. REVLIMID [Suspect]
     Indication: MULTIPLE MYELOMA
     Dosage: 15 Milligram
     Route: 048
     Dates: start: 20101022
  8. DEXAMETHASONE [Suspect]
     Indication: MULTIPLE MYELOMA
     Dosage: 20 Milligram
     Route: 065
     Dates: start: 20101022
  9. ACETYLSALICYLIC ACID [Concomitant]
     Indication: DVT PROPHYLAXIS
     Dosage: 80 Milligram
     Route: 048
     Dates: start: 20100319
  10. ACETYLSALICYLIC ACID [Concomitant]
     Indication: HYPERTENSION
  11. PANTOPRAZOL [Concomitant]
     Indication: PROPHYLAXIS
     Dosage: 40 Milligram
     Route: 048
     Dates: start: 20100316
  12. FUROSEMIDE [Concomitant]
     Indication: OEDEMA
     Dosage: 40 Milligram
     Route: 048
     Dates: start: 20100514
  13. DUOTAL [Concomitant]
     Indication: OSTEOPOROSIS
     Dosage: 1000 Milligram
     Route: 048
     Dates: start: 20100317

REACTIONS (1)
  - Squamous cell carcinoma of skin [Recovered/Resolved]
